FAERS Safety Report 7276930-2 (Version None)
Quarter: 2011Q1

REPORT INFORMATION
  Report Type: 
  Country: None (occurrence: None)
  Receive Date: 20110207
  Receipt Date: 20110126
  Transmission Date: 20110831
  Serious: No
  Sender: FDA-Public Use
  Company Number: US-BIOGENIDEC-2011BI003145

PATIENT
  Age: 34 Year
  Sex: Male

DRUGS (4)
  1. VITAMIN D [Concomitant]
     Dates: start: 20100101
  2. VITAMIN B-12 [Concomitant]
  3. TYSABRI [Suspect]
     Indication: MULTIPLE SCLEROSIS
     Route: 042
     Dates: start: 20100301
  4. NEURONTIN [Concomitant]
     Indication: PARAESTHESIA

REACTIONS (5)
  - MUSCULAR WEAKNESS [None]
  - MUSCLE SPASMS [None]
  - COORDINATION ABNORMAL [None]
  - HYPOAESTHESIA [None]
  - FOOT DEFORMITY [None]
